FAERS Safety Report 22525867 (Version 1)
Quarter: 2023Q2

REPORT INFORMATION
  Report Type: Spontaneous
  Country: US (occurrence: US)
  Receive Date: 20230606
  Receipt Date: 20230606
  Transmission Date: 20230721
  Serious: No
  Sender: FDA-Public Use
  Company Number: US-BIOVITRUM-2023-US-009697

PATIENT
  Age: 75 Year
  Sex: Female

DRUGS (3)
  1. DOPTELET [Suspect]
     Active Substance: AVATROMBOPAG MALEATE
     Indication: Immune thrombocytopenia
     Dosage: AS NEEDED
     Route: 048
  2. DOPTELET [Suspect]
     Active Substance: AVATROMBOPAG MALEATE
     Dosage: AS NEEDED
     Route: 048
  3. DOPTELET [Suspect]
     Active Substance: AVATROMBOPAG MALEATE
     Dosage: DAILY
     Route: 048
     Dates: start: 20230419

REACTIONS (3)
  - Platelet count decreased [Unknown]
  - Pain [Not Recovered/Not Resolved]
  - Alopecia [Not Recovered/Not Resolved]
